FAERS Safety Report 22175102 (Version 1)
Quarter: 2023Q2

REPORT INFORMATION
  Report Type: Spontaneous
  Country: None (occurrence: FR)
  Receive Date: 20230405
  Receipt Date: 20230405
  Transmission Date: 20230722
  Serious: Yes (Hospitalization)
  Sender: FDA-Public Use
  Company Number: FR-Provepharm-2139903

PATIENT
  Age: 71 Year
  Sex: Female
  Weight: 63 kg

DRUGS (1)
  1. PROVAYBLUE [Suspect]
     Active Substance: METHYLENE BLUE

REACTIONS (1)
  - Haemolysis [None]
